FAERS Safety Report 5674702-3 (Version None)
Quarter: 2008Q1

REPORT INFORMATION
  Report Type: 
  Country: None (occurrence: None)
  Receive Date: 20080320
  Receipt Date: 20080314
  Transmission Date: 20080703
  Serious: Yes (Other)
  Sender: FDA-Public Use
  Company Number: B0513036A

PATIENT
  Sex: Female

DRUGS (1)
  1. BUPROPION HCL [Suspect]
     Route: 065

REACTIONS (4)
  - AGGRESSION [None]
  - HYPERACUSIS [None]
  - IRRITABILITY [None]
  - PAROSMIA [None]
